FAERS Safety Report 10569656 (Version 2)
Quarter: 2014Q4

REPORT INFORMATION
  Report Type: Spontaneous
  Country: AU (occurrence: AU)
  Receive Date: 20141107
  Receipt Date: 20141112
  Transmission Date: 20150529
  Serious: Yes (Death, Other)
  Sender: FDA-Public Use
  Company Number: AU-AMGEN-AUSSP2014085889

PATIENT
  Age: 75 Year
  Sex: Female

DRUGS (2)
  1. ENBREL [Suspect]
     Active Substance: ETANERCEPT
     Indication: RHEUMATOID ARTHRITIS
     Dosage: 50 MG, WEEKLY
     Route: 058
     Dates: start: 2003, end: 2014
  2. METHOTREXATE [Concomitant]
     Active Substance: METHOTREXATE
     Dosage: 10 MG, WEEKLY
     Dates: start: 1996, end: 2014

REACTIONS (12)
  - Cough [Unknown]
  - Pneumonia [Unknown]
  - Loss of consciousness [Unknown]
  - Confusional state [Unknown]
  - Malaise [Unknown]
  - Gout [Unknown]
  - Infection [Fatal]
  - Headache [Unknown]
  - Necrosis [Fatal]
  - Nematodiasis [Fatal]
  - Pyrexia [Unknown]
  - Encephalitis [Fatal]
